FAERS Safety Report 12729744 (Version 3)
Quarter: 2016Q3

REPORT INFORMATION
  Report Type: Spontaneous
  Country: IL (occurrence: IL)
  Receive Date: 20160909
  Receipt Date: 20160928
  Transmission Date: 20161109
  Serious: Yes (Death, Other)
  Sender: FDA-Public Use
  Company Number: IL-PFIZER INC-2016422013

PATIENT
  Age: 72 Year
  Sex: Male

DRUGS (1)
  1. ELELYSO [Suspect]
     Active Substance: TALIGLUCERASE ALFA
     Indication: GAUCHER^S DISEASE TYPE I
     Dosage: 3000 ENZYME UNITS IN EACH INFUSION
     Route: 042
     Dates: start: 2008, end: 201609

REACTIONS (1)
  - Lung neoplasm malignant [Fatal]
